FAERS Safety Report 7792918-7 (Version None)
Quarter: 2011Q3

REPORT INFORMATION
  Report Type: 
  Country: None (occurrence: None)
  Receive Date: 20110929
  Receipt Date: 20110915
  Transmission Date: 20111222
  Serious: Yes (Hospitalization)
  Sender: FDA-Public Use
  Company Number: TCI2011A03533

PATIENT
  Age: 83 Year
  Sex: Male

DRUGS (8)
  1. BASEN (VOGILIBOSE) [Concomitant]
  2. LIVALO [Concomitant]
  3. ACTOS [Suspect]
     Indication: TYPE 2 DIABETES MELLITUS
     Dosage: 15 MG (15 MG, 1 IN 1 D)
     Route: 048
     Dates: start: 20050903, end: 20110621
  4. ALTAT (ROXATIDINE ACETATE HYDROCHLORIDE) [Concomitant]
  5. AMLODIN OD(AMLODIPINE BESILATE) [Concomitant]
  6. ASPIRIN [Concomitant]
  7. TAMSULOSIN HYDROCHLORIDE [Concomitant]
  8. ALLOPURINOL [Concomitant]

REACTIONS (1)
  - BLADDER TRANSITIONAL CELL CARCINOMA [None]
